FAERS Safety Report 9330354 (Version 2)
Quarter: 2013Q3

REPORT INFORMATION
  Report Type: Spontaneous
  Country: US (occurrence: US)
  Receive Date: 20130605
  Receipt Date: 20130819
  Transmission Date: 20140515
  Serious: Yes (Hospitalization)
  Sender: FDA-Public Use
  Company Number: US-BIOGENIDEC-2012BI053574

PATIENT
  Age: 42 Year
  Sex: Male

DRUGS (1)
  1. AVONEX [Suspect]
     Indication: MULTIPLE SCLEROSIS
     Route: 030
     Dates: start: 20110727, end: 20121101

REACTIONS (7)
  - Localised infection [Recovered/Resolved]
  - Mobility decreased [Recovered/Resolved]
  - Dysstasia [Recovered/Resolved]
  - Paralysis [Recovered/Resolved]
  - Erectile dysfunction [Unknown]
  - Influenza like illness [Recovered/Resolved]
  - Anxiety [Not Recovered/Not Resolved]
